FAERS Safety Report 18681104 (Version 2)
Quarter: 2021Q4

REPORT INFORMATION
  Report Type: Report from Study
  Country: US (occurrence: US)
  Receive Date: 20201229
  Receipt Date: 20211229
  Transmission Date: 20220303
  Serious: No
  Sender: FDA-Public Use
  Company Number: US-CLOVIS ONCOLOGY-CLO-2020-002154

PATIENT
  Sex: Female

DRUGS (3)
  1. RUBRACA [Suspect]
     Active Substance: RUCAPARIB CAMSYLATE
     Indication: Ovarian cancer
     Dosage: 600 MG, BID
     Route: 048
     Dates: start: 20201111
  2. RUBRACA [Suspect]
     Active Substance: RUCAPARIB CAMSYLATE
     Dosage: 300 MG IN AM/600 MG IN PM
     Route: 048
  3. RUBRACA [Suspect]
     Active Substance: RUCAPARIB CAMSYLATE
     Dosage: 600 MG, BID
     Route: 048
     Dates: start: 20201111, end: 20210311

REACTIONS (12)
  - Hypertension [Not Recovered/Not Resolved]
  - Renal disorder [Unknown]
  - Night sweats [Unknown]
  - Full blood count abnormal [Unknown]
  - Carbohydrate antigen 125 increased [Unknown]
  - Vomiting [Recovered/Resolved]
  - Rash [Recovering/Resolving]
  - Taste disorder [Unknown]
  - Photosensitivity reaction [Recovering/Resolving]
  - Fatigue [Unknown]
  - Diarrhoea [Recovered/Resolved]
  - Diarrhoea [Unknown]

NARRATIVE: CASE EVENT DATE: 20200101
